FAERS Safety Report 8342965 (Version 5)
Quarter: 2014Q3

REPORT INFORMATION
  Report Type: Spontaneous
  Country: US (occurrence: US)
  Receive Date: 20111202
  Receipt Date: 20140723
  Transmission Date: 20150326
  Serious: Yes (Hospitalization, Other)
  Sender: FDA-Public Use
  Company Number: US-009507513-2011SP040934

PATIENT
  Sex: Female
  Weight: 108.41 kg

DRUGS (1)
  1. NUVARING [Suspect]
     Active Substance: ETHINYL ESTRADIOL\ETONOGESTREL
     Indication: CONTRACEPTION
     Dosage: UNK
     Route: 067
     Dates: start: 20071021, end: 20080921

REACTIONS (19)
  - Pulmonary embolism [Recovered/Resolved]
  - Soft tissue mass [Unknown]
  - Back pain [Unknown]
  - Deep vein thrombosis [Recovered/Resolved]
  - Rash [Unknown]
  - Lung cyst [Unknown]
  - Nausea [Recovered/Resolved]
  - Diarrhoea [Recovered/Resolved]
  - Vomiting [Recovered/Resolved]
  - Neck pain [Unknown]
  - Dyspepsia [Unknown]
  - Eructation [Unknown]
  - Increased bronchial secretion [Unknown]
  - Pulmonary pneumatocele [Unknown]
  - Road traffic accident [Unknown]
  - Hypokalaemia [Recovered/Resolved]
  - Drug hypersensitivity [Unknown]
  - Polyp [Unknown]
  - Bronchiectasis [Unknown]

NARRATIVE: CASE EVENT DATE: 200809
